FAERS Safety Report 4928322-6 (Version None)
Quarter: 2006Q1

REPORT INFORMATION
  Report Type: 
  Country: None (occurrence: None)
  Receive Date: 20060228
  Receipt Date: 20051003
  Transmission Date: 20060701
  Serious: Yes (Hospitalization, Other)
  Sender: FDA-Public Use
  Company Number: US-MERCK-0510USA02595

PATIENT
  Age: 72 Year
  Sex: Male
  Weight: 89 kg

DRUGS (9)
  1. NEURONTIN [Concomitant]
     Indication: NEUROPATHY
     Route: 065
  2. ULTRAM [Concomitant]
     Route: 065
  3. PRINZIDE [Concomitant]
     Route: 048
  4. GLUCOPHAGE [Concomitant]
     Route: 048
  5. VIAGRA [Concomitant]
     Route: 065
  6. DIPROLENE [Concomitant]
     Route: 065
  7. VIOXX [Suspect]
     Indication: OSTEOARTHRITIS
     Route: 048
     Dates: start: 20030324, end: 20030507
  8. PRILOSEC [Concomitant]
     Route: 048
  9. PAXIL [Concomitant]
     Route: 048

REACTIONS (4)
  - ARTHROPATHY [None]
  - CEREBRAL ISCHAEMIA [None]
  - ISCHAEMIC STROKE [None]
  - TRANSIENT ISCHAEMIC ATTACK [None]
